FAERS Safety Report 10648920 (Version 1)
Quarter: 2014Q4

REPORT INFORMATION
  Report Type: Spontaneous
  Country: US (occurrence: None)
  Receive Date: 20141205
  Receipt Date: 20141205
  Transmission Date: 20150529
  Serious: No
  Sender: FDA-Public Use
  Company Number: 163-POMAL-14092730

PATIENT
  Age: 73 Year
  Sex: Male
  Weight: 117.9 kg

DRUGS (1)
  1. POMALYST [Suspect]
     Active Substance: POMALIDOMIDE
     Indication: PLASMA CELL MYELOMA
     Dosage: 2MG, 1 IN 1D PO
     Route: 048
     Dates: start: 201407

REACTIONS (2)
  - Drug dose omission [None]
  - Localised infection [None]

NARRATIVE: CASE EVENT DATE: 20140911
